FAERS Safety Report 26113557 (Version 1)
Quarter: 2025Q4

REPORT INFORMATION
  Report Type: Spontaneous
  Country: AU (occurrence: AU)
  Receive Date: 20251202
  Receipt Date: 20251202
  Transmission Date: 20260117
  Serious: Yes (Life-Threatening, Hospitalization)
  Sender: MYLAN
  Company Number: AU-MYLANLABS-2025M1103040

PATIENT
  Age: 58 Year
  Sex: Female

DRUGS (5)
  1. DEXAMETHASONE [Suspect]
     Active Substance: DEXAMETHASONE
     Indication: Acute respiratory distress syndrome
     Dosage: UNK
  2. ALBUTEROL [Suspect]
     Active Substance: ALBUTEROL
     Indication: Asthma
     Dosage: UNK, NEBULISED
  3. ALBUTEROL [Suspect]
     Active Substance: ALBUTEROL
     Indication: Acute respiratory distress syndrome
     Dosage: UNK, SALBUTAMOL RELIEVER
  4. IPRATROPIUM [Suspect]
     Active Substance: IPRATROPIUM
     Indication: Acute respiratory distress syndrome
     Dosage: UNK, NEBULISED
  5. BUDESONIDE\FORMOTEROL [Concomitant]
     Active Substance: BUDESONIDE\FORMOTEROL
     Indication: Acute respiratory distress syndrome
     Dosage: UNK

REACTIONS (5)
  - Prescription drug used without a prescription [Recovered/Resolved]
  - Anaphylactic reaction [Recovered/Resolved]
  - Bronchospasm [Recovered/Resolved]
  - Acute respiratory distress syndrome [Recovered/Resolved]
  - Treatment failure [Unknown]
